FAERS Safety Report 4637624-2 (Version None)
Quarter: 2005Q2

REPORT INFORMATION
  Report Type: 
  Country: None (occurrence: None)
  Receive Date: 20050418
  Receipt Date: 20050404
  Transmission Date: 20051028
  Serious: Yes (Death)
  Sender: FDA-Public Use
  Company Number: JP-JNJFOC-20041206418

PATIENT
  Sex: Male
  Weight: 64 kg

DRUGS (7)
  1. CRAVIT [Suspect]
     Route: 049
     Dates: start: 20041115, end: 20041129
  2. LOXONIN [Suspect]
     Indication: DRUG USE FOR UNKNOWN INDICATION
     Route: 049
  3. LOXONIN [Suspect]
     Dosage: 60 MG AS REQUIRED
     Route: 049
     Dates: end: 20041202
  4. NAVELBINE [Suspect]
     Route: 041
     Dates: start: 20041124, end: 20041124
  5. LASIX [Suspect]
     Indication: PERICARDIAL EFFUSION
     Route: 049
     Dates: start: 20040901, end: 20041126
  6. DIGOXIN [Suspect]
     Route: 049
     Dates: start: 20041115, end: 20041129
  7. GEMZAR [Concomitant]
     Route: 041
     Dates: start: 20041124, end: 20041124

REACTIONS (2)
  - RENAL IMPAIRMENT [None]
  - SEPSIS [None]
